FAERS Safety Report 22066399 (Version 1)
Quarter: 2023Q1

REPORT INFORMATION
  Report Type: Spontaneous
  Country: US (occurrence: US)
  Receive Date: 20230306
  Receipt Date: 20230306
  Transmission Date: 20230418
  Serious: Yes (Hospitalization)
  Sender: FDA-Public Use
  Company Number: US-RIGEL Pharmaceuticals, INC-2023FOS000238

PATIENT
  Age: 74 Year
  Sex: Female
  Weight: 104.31 kg

DRUGS (1)
  1. TAVALISSE [Suspect]
     Active Substance: FOSTAMATINIB
     Indication: Immune thrombocytopenia
     Dosage: 100 MG, BID
     Route: 048
     Dates: start: 20230105

REACTIONS (3)
  - Platelet count decreased [Unknown]
  - Kidney infection [Unknown]
  - Biopsy bone marrow [Unknown]

NARRATIVE: CASE EVENT DATE: 20230228
